FAERS Safety Report 17819243 (Version 1)
Quarter: 2020Q2

REPORT INFORMATION
  Report Type: Spontaneous
  Country: JP (occurrence: JP)
  Receive Date: 20200523
  Receipt Date: 20200523
  Transmission Date: 20200714
  Serious: Yes (Hospitalization)
  Sender: FDA-Public Use
  Company Number: JP-AMGEN-JPNSP2020080867

PATIENT
  Age: 45 Year
  Sex: Female
  Weight: 72 kg

DRUGS (11)
  1. PARSABIV [Suspect]
     Active Substance: ETELCALCETIDE HYDROCHLORIDE
     Indication: HYPERPARATHYROIDISM SECONDARY
     Dosage: 5 MG, Q56H
     Route: 010
     Dates: start: 20180720
  2. HEPARIN [Concomitant]
     Active Substance: HEPARIN SODIUM
     Dosage: UNK
     Route: 065
  3. KIKLIN [Concomitant]
     Active Substance: BIXALOMER
     Dosage: 2250 MG, EVERYDAY
     Route: 048
     Dates: end: 20190331
  4. OXAROL [Concomitant]
     Active Substance: MAXACALCITOL
     Dosage: 5 UG, Q56H
     Route: 065
     Dates: start: 20191202
  5. FOSRENOL [Concomitant]
     Active Substance: LANTHANUM CARBONATE
     Dosage: 750 MG, EVERYDAY
     Route: 048
     Dates: start: 20180919, end: 20181211
  6. PRECIPITATED CALCIUM CARBONATE [Concomitant]
     Active Substance: CALCIUM CARBONATE
     Dosage: 1500 MG, EVERYDAY
     Route: 048
     Dates: end: 20181014
  7. RIONA [Concomitant]
     Active Substance: FERRIC CITRATE ANHYDROUS
     Dosage: 1500 MG, EVERYDAY
     Route: 048
     Dates: start: 20191127
  8. KIKLIN [Concomitant]
     Active Substance: BIXALOMER
     Dosage: 3000 MG, EVERYDAY
     Route: 048
     Dates: start: 20190401
  9. NESP [Concomitant]
     Active Substance: DARBEPOETIN ALFA
     Dosage: 120 UG, Q4W
     Route: 042
  10. OXAROL [Concomitant]
     Active Substance: MAXACALCITOL
     Indication: HYPERPARATHYROIDISM SECONDARY
     Dosage: 15 UG, Q56H
     Route: 065
     Dates: end: 20190719
  11. OXAROL [Concomitant]
     Active Substance: MAXACALCITOL
     Dosage: 10 UG, Q56H
     Route: 065
     Dates: start: 20190722, end: 20191129

REACTIONS (1)
  - Shunt stenosis [Recovering/Resolving]

NARRATIVE: CASE EVENT DATE: 20200511
